FAERS Safety Report 9184364 (Version 1)
Quarter: 2012Q4

REPORT INFORMATION
  Report Type: 
  Country: CN (occurrence: CN)
  Receive Date: 20121031
  Receipt Date: 20121031
  Transmission Date: 20130627
  Serious: Yes (Other)
  Sender: FDA-Public Use
  Company Number: CN-ELI_LILLY_AND_COMPANY-CN201012004417

PATIENT
  Age: 28 Year
  Sex: Female

DRUGS (1)
  1. CECLOR [Suspect]
     Indication: UPPER RESPIRATORY TRACT INFECTION
     Dosage: 0.375 g, 2/D
     Route: 048
     Dates: start: 20101213, end: 20101213

REACTIONS (3)
  - Laryngeal oedema [Recovering/Resolving]
  - Dysphonia [Recovering/Resolving]
  - Rash generalised [Recovering/Resolving]
